FAERS Safety Report 7367639-5 (Version None)
Quarter: 2011Q1

REPORT INFORMATION
  Report Type: 
  Country: None (occurrence: None)
  Receive Date: 20110322
  Receipt Date: 20100908
  Transmission Date: 20110831
  Serious: Yes (Hospitalization)
  Sender: FDA-Public Use
  Company Number: US-BAYER-201019709NA

PATIENT
  Sex: Female
  Weight: 111 kg

DRUGS (17)
  1. METFORMIN [Concomitant]
     Indication: PULMONARY EMBOLISM
     Dates: start: 20070601, end: 20080715
  2. FINASTERIDE [Concomitant]
     Indication: ALOPECIA
  3. TOPROL-XL [Concomitant]
  4. YASMIN [Suspect]
     Indication: POLYCYSTIC OVARIES
  5. METOPROLOL [Concomitant]
     Indication: ACNE
  6. METFORMIN [Concomitant]
     Indication: PULMONARY INFARCTION
  7. YAZ [Suspect]
     Indication: ACNE
  8. YASMIN [Suspect]
     Indication: ACNE
     Route: 048
     Dates: start: 20070901, end: 20080215
  9. OCELLA [Suspect]
     Indication: ACNE
  10. MULTI-VITAMIN [Concomitant]
     Indication: PULMONARY INFARCTION
  11. FLAXSEED OIL [Concomitant]
     Indication: SUPPLEMENTATION THERAPY
  12. ALLEGRA D 24 HOUR [Concomitant]
     Indication: PULMONARY EMBOLISM
     Dates: start: 20050101, end: 20090215
  13. VITAMIN B COMPLEX CAP [Concomitant]
     Indication: HEADACHE
  14. FINASTERIDE [Concomitant]
     Indication: ACNE
     Dates: start: 20080101
  15. VICODIN [Concomitant]
     Dosage: EVERY 6 HOURS
     Route: 048
  16. YASMIN [Suspect]
     Indication: SUPPLEMENTATION THERAPY
  17. TORADOL [Concomitant]

REACTIONS (5)
  - PULMONARY EMBOLISM [None]
  - PULMONARY INFARCTION [None]
  - PLEURITIC PAIN [None]
  - INJURY [None]
  - MENTAL DISORDER [None]
